FAERS Safety Report 4825593-1 (Version None)
Quarter: 2005Q4

REPORT INFORMATION
  Report Type: 
  Country: None (occurrence: None)
  Receive Date: 20051111
  Receipt Date: 20051003
  Transmission Date: 20060501
  Serious: No
  Sender: FDA-Public Use
  Company Number: US-GLAXOSMITHKLINE-A0576681A

PATIENT
  Sex: Male

DRUGS (5)
  1. AVODART [Suspect]
     Indication: BENIGN PROSTATIC HYPERPLASIA
     Route: 048
  2. AMBIEN [Concomitant]
  3. LIPITOR [Concomitant]
  4. DIAVAN [Concomitant]
  5. LOESTRIN 1.5/30 [Concomitant]

REACTIONS (1)
  - CONSTIPATION [None]
